FAERS Safety Report 12285559 (Version 1)
Quarter: 2016Q2

REPORT INFORMATION
  Report Type: Spontaneous
  Country: US (occurrence: None)
  Receive Date: 20160419
  Receipt Date: 20160419
  Transmission Date: 20160815
  Serious: Yes (Other)
  Sender: FDA-Public Use
  Company Number: None

PATIENT
  Age: 72 Year
  Sex: Female
  Weight: 79.38 kg

DRUGS (9)
  1. DOXAZOSIN [Concomitant]
     Active Substance: DOXAZOSIN\DOXAZOSIN MESYLATE
  2. DILT-XR GENERIC FOR DILACOR XR [Suspect]
     Active Substance: DILTIAZEM HYDROCHLORIDE
     Indication: OESOPHAGEAL SPASM
     Route: 048
     Dates: start: 201410, end: 201603
  3. ATENOLOL. [Concomitant]
     Active Substance: ATENOLOL
  4. FISH OIL [Concomitant]
     Active Substance: FISH OIL
  5. ASA [Concomitant]
     Active Substance: ASPIRIN
  6. ATORVASTATIN [Concomitant]
     Active Substance: ATORVASTATIN
  7. COQ10 [Concomitant]
     Active Substance: UBIDECARENONE
  8. MULTIVIT [Concomitant]
     Active Substance: VITAMINS
  9. DILT-XR GENERIC FOR DILACOR XR [Suspect]
     Active Substance: DILTIAZEM HYDROCHLORIDE
     Indication: HYPERTENSION
     Route: 048
     Dates: start: 201410, end: 201603

REACTIONS (1)
  - Vision blurred [None]

NARRATIVE: CASE EVENT DATE: 201502
